FAERS Safety Report 4498061-7 (Version None)
Quarter: 2004Q4

REPORT INFORMATION
  Report Type: 
  Country: None (occurrence: None)
  Receive Date: 20041109
  Receipt Date: 20041109
  Transmission Date: 20050328
  Serious: Yes (Hospitalization)
  Sender: FDA-Public Use
  Company Number: None

PATIENT
  Age: 78 Year
  Sex: Male
  Weight: 69 kg

DRUGS (1)
  1. CEFPODOXIME  400 MG [Suspect]
     Indication: CELLULITIS
     Dosage: 400MG  BID ORAL
     Route: 048
     Dates: start: 20041004, end: 20041022

REACTIONS (2)
  - CLOSTRIDIUM COLITIS [None]
  - DIARRHOEA [None]
